FAERS Safety Report 8575198-4 (Version None)
Quarter: 2012Q3

REPORT INFORMATION
  Report Type: 
  Country: None (occurrence: None)
  Receive Date: 20120807
  Receipt Date: 20120803
  Transmission Date: 20120928
  Serious: Yes (Hospitalization)
  Sender: FDA-Public Use
  Company Number: FR-SANOFI-AVENTIS-2012SA045055

PATIENT
  Age: 56 Year
  Sex: Male

DRUGS (5)
  1. ATORVASTATIN [Suspect]
     Route: 048
     Dates: start: 20090301
  2. LASIX [Suspect]
     Route: 048
     Dates: start: 20090301
  3. BISOPROLOL FUMARATE [Suspect]
     Route: 048
     Dates: start: 20090301
  4. REMICADE [Suspect]
     Indication: CROHN'S DISEASE
     Route: 041
     Dates: start: 20100601, end: 20110601
  5. PERINDOPRIL ERBUMINE [Suspect]
     Route: 048
     Dates: start: 20090301

REACTIONS (1)
  - INTERSTITIAL LUNG DISEASE [None]
